FAERS Safety Report 6244285-8 (Version None)
Quarter: 2009Q2

REPORT INFORMATION
  Report Type: 
  Country: None (occurrence: None)
  Receive Date: 20090623
  Receipt Date: 20090623
  Transmission Date: 20091009
  Serious: Yes (Hospitalization)
  Sender: FDA-Public Use
  Company Number: None

PATIENT
  Age: 36 Year
  Sex: Male
  Weight: 94.3 kg

DRUGS (1)
  1. IOPROMIDE [Suspect]
     Indication: COMPUTERISED TOMOGRAM ABDOMEN
     Dosage: 90 ML ONCE IV
     Route: 042
     Dates: start: 20090512, end: 20090512

REACTIONS (3)
  - MUSCLE TIGHTNESS [None]
  - TENSION HEADACHE [None]
  - URTICARIA [None]
